FAERS Safety Report 8407647-6 (Version None)
Quarter: 2012Q2

REPORT INFORMATION
  Report Type: 
  Country: None (occurrence: None)
  Receive Date: 20120323
  Receipt Date: 20110517
  Transmission Date: 20120825
  Serious: Yes (Hospitalization)
  Sender: FDA-Public Use
  Company Number: 163-21880-11042542

PATIENT
  Age: 53 Year
  Sex: Male
  Weight: 67.1324 kg

DRUGS (6)
  1. PREDNISONE TAB [Concomitant]
  2. REVLIMID [Suspect]
     Indication: MULTIPLE MYELOMA
     Dosage: 25 MG, 1 IN 1 D, PO ; 25 MG, 1 IN 1 D, PO
     Route: 048
     Dates: start: 20110401
  3. REVLIMID [Suspect]
     Indication: MULTIPLE MYELOMA
     Dosage: 25 MG, 1 IN 1 D, PO ; 25 MG, 1 IN 1 D, PO
     Route: 048
     Dates: start: 20091001
  4. COUMADIN [Concomitant]
  5. HYDROCODONE BITARTRATE [Concomitant]
  6. MORPHINE [Concomitant]

REACTIONS (2)
  - CARDIAC FAILURE [None]
  - CORONARY ARTERY DISEASE [None]
